FAERS Safety Report 7612335-X (Version None)
Quarter: 2011Q3

REPORT INFORMATION
  Report Type: 
  Country: None (occurrence: None)
  Receive Date: 20110715
  Receipt Date: 20110708
  Transmission Date: 20111222
  Serious: Yes (Other)
  Sender: FDA-Public Use
  Company Number: AU-ASTRAZENECA-2011SE40870

PATIENT
  Age: 691 Month
  Sex: Female

DRUGS (7)
  1. CRESTOR [Suspect]
     Route: 048
     Dates: end: 20100401
  2. NEXIUM [Concomitant]
     Route: 048
  3. CALCIUM CARBONATE [Concomitant]
  4. VITAMIN D [Concomitant]
  5. CRESTOR [Suspect]
     Route: 048
     Dates: start: 20100401, end: 20110501
  6. COENZYME Q10 [Concomitant]
  7. METFORMIN HCL [Concomitant]
     Dosage: 500 MG, TWO TABLETS, ONCE DAILY

REACTIONS (2)
  - DEPRESSION [None]
  - SUICIDAL IDEATION [None]
